FAERS Safety Report 6470754 (Version 2)
Quarter: 2022Q1

REPORT INFORMATION
  Report Type: Report from Study
  Country: US (occurrence: US)
  Receive Date: 20071119
  Receipt Date: 20220119
  Transmission Date: 20220424
  Serious: Yes (Hospitalization)
  Sender: FDA-Public Use
  Company Number: US-PFIZER INC-2007092799

PATIENT
  Age: 70 Year
  Sex: Male
  Weight: 103.6 kg

DRUGS (1)
  1. SUTENT [Suspect]
     Active Substance: SUNITINIB MALATE
     Indication: Thyroid neoplasm
     Dosage: CYCLE = 6 WEEKS: 50MG PO QD X 4 WEEKS
     Route: 048
     Dates: start: 20061226

REACTIONS (1)
  - Pneumonitis [Recovering/Resolving]

NARRATIVE: CASE EVENT DATE: 20071019
